FAERS Safety Report 15823934 (Version 1)
Quarter: 2019Q1

REPORT INFORMATION
  Report Type: Report from Study
  Country: US (occurrence: US)
  Receive Date: 20190114
  Receipt Date: 20190114
  Transmission Date: 20190417
  Serious: Yes (Hospitalization)
  Sender: FDA-Public Use
  Company Number: US-EXELIXIS-CABO-19018127

PATIENT
  Sex: Male

DRUGS (19)
  1. CABOMETYX [Suspect]
     Active Substance: CABOZANTINIB S-MALATE
     Indication: RENAL CANCER
     Dosage: 60 MG, QD
     Route: 048
     Dates: start: 20181208
  2. ALLOPURINOL. [Concomitant]
     Active Substance: ALLOPURINOL
  3. LOPRESSOR [Concomitant]
     Active Substance: METOPROLOL TARTRATE
  4. OXYCODONE [Concomitant]
     Active Substance: OXYCODONE
  5. ZYLOPRIM [Concomitant]
     Active Substance: ALLOPURINOL
  6. PREDNISOLONE ACETATE. [Concomitant]
     Active Substance: PREDNISOLONE ACETATE
  7. NITROSTAT [Concomitant]
     Active Substance: NITROGLYCERIN
  8. LEXAPRO [Concomitant]
     Active Substance: ESCITALOPRAM OXALATE
  9. AMLODIPINE [Concomitant]
     Active Substance: AMLODIPINE BESYLATE
  10. ESCITALOPRAM [Concomitant]
     Active Substance: ESCITALOPRAM OXALATE
  11. ZANTAC [Concomitant]
     Active Substance: RANITIDINE HYDROCHLORIDE
  12. ROCALTROL [Concomitant]
     Active Substance: CALCITRIOL
  13. NORVASC [Concomitant]
     Active Substance: AMLODIPINE BESYLATE
  14. LIPITOR [Concomitant]
     Active Substance: ATORVASTATIN CALCIUM
  15. DEMADEX [Concomitant]
     Active Substance: TORSEMIDE
  16. COSOPT [Concomitant]
     Active Substance: DORZOLAMIDE HYDROCHLORIDE\TIMOLOL MALEATE
  17. XALATAN [Concomitant]
     Active Substance: LATANOPROST
  18. ALPHAGAN P [Concomitant]
     Active Substance: BRIMONIDINE TARTRATE
  19. PROTONIX [Concomitant]
     Active Substance: PANTOPRAZOLE SODIUM

REACTIONS (3)
  - Urinary tract infection [Recovering/Resolving]
  - Ischaemic stroke [Unknown]
  - Weight decreased [Unknown]
